FAERS Safety Report 25276705 (Version 1)
Quarter: 2025Q2

REPORT INFORMATION
  Report Type: Spontaneous
  Country: US (occurrence: US)
  Receive Date: 20250507
  Receipt Date: 20250507
  Transmission Date: 20250717
  Serious: No
  Sender: CSL BEHRING
  Company Number: US-BEH-2025203536

PATIENT
  Sex: Male

DRUGS (1)
  1. HIZENTRA [Suspect]
     Active Substance: HUMAN IMMUNOGLOBULIN G
     Dosage: 27 G, QOW(10 GM/50ML: INFUSE 27 GM UNDER THE SKIN (SUBCUTANEOUS INJECTION) EVERY 2 WEEKS; 4 GM/20ML:
     Route: 058

REACTIONS (3)
  - Pain [Unknown]
  - Headache [Unknown]
  - Sinusitis [Unknown]
